FAERS Safety Report 23762797 (Version 7)
Quarter: 2025Q4

REPORT INFORMATION
  Report Type: Report from Study
  Country: US (occurrence: None)
  Receive Date: 20240419
  Receipt Date: 20251015
  Transmission Date: 20260118
  Serious: Yes (Hospitalization, Other)
  Sender: UCB
  Company Number: US-UCBSA-2024009092

PATIENT
  Age: 67 Year

DRUGS (2)
  1. BIMEKIZUMAB [Suspect]
     Active Substance: BIMEKIZUMAB
     Indication: Psoriasis
     Dosage: 320 MILLIGRAM, EV 4 WEEKS
  2. BIMEKIZUMAB [Suspect]
     Active Substance: BIMEKIZUMAB
     Dosage: 320 MILLIGRAM, EV 8 WEEKS

REACTIONS (16)
  - Blindness [Unknown]
  - IIIrd nerve paralysis [Not Recovered/Not Resolved]
  - Wound infection [Unknown]
  - Paralysis [Unknown]
  - Cataract [Unknown]
  - Cataract operation [Unknown]
  - Bronchitis [Unknown]
  - Bone pain [Not Recovered/Not Resolved]
  - Wound secretion [Not Recovered/Not Resolved]
  - Sinusitis [Not Recovered/Not Resolved]
  - Rash [Recovered/Resolved]
  - Diplopia [Not Recovered/Not Resolved]
  - Psoriasis [Unknown]
  - Skin irritation [Unknown]
  - Product dose omission issue [Unknown]
  - Therapy interrupted [Unknown]
